FAERS Safety Report 4872878-9 (Version None)
Quarter: 2006Q1

REPORT INFORMATION
  Report Type: 
  Country: None (occurrence: None)
  Receive Date: 20060105
  Receipt Date: 20041203
  Transmission Date: 20060701
  Serious: No
  Sender: FDA-Public Use
  Company Number: US-BRISTOL-MYERS SQUIBB COMPANY-12785259

PATIENT
  Age: 51 Year
  Sex: Female

DRUGS (5)
  1. SERZONE [Suspect]
     Dates: start: 19990101
  2. HYDROXYZINE HCL [Suspect]
     Indication: SEASONAL ALLERGY
     Route: 048
     Dates: start: 20000101
  3. HYDROXYZINE HCL [Suspect]
     Indication: RHINORRHOEA
     Route: 048
     Dates: start: 20000101
  4. RITALIN [Suspect]
     Dates: start: 19990101
  5. KLONOPIN [Suspect]
     Dates: start: 19990101

REACTIONS (1)
  - DRUG SCREEN FALSE POSITIVE [None]
